FAERS Safety Report 17774278 (Version 1)
Quarter: 2020Q2

REPORT INFORMATION
  Report Type: Spontaneous
  Country: FR (occurrence: FR)
  Receive Date: 20200513
  Receipt Date: 20200513
  Transmission Date: 20200714
  Serious: Yes (Hospitalization)
  Sender: FDA-Public Use
  Company Number: FR-BRISTOL-MYERS SQUIBB COMPANY-BMS-2020-037067

PATIENT
  Age: 63 Year
  Sex: Male

DRUGS (1)
  1. OPDIVO [Suspect]
     Active Substance: NIVOLUMAB
     Indication: METASTATIC MALIGNANT MELANOMA
     Dosage: UNK, 3MG/KG TOUTES LES 3 SEMAINES PUIS TOUTES LES 2 SEMAINES
     Route: 042
     Dates: start: 20191015

REACTIONS (3)
  - Diarrhoea [Not Recovered/Not Resolved]
  - Off label use [Unknown]
  - Lymphocytic hypophysitis [Not Recovered/Not Resolved]

NARRATIVE: CASE EVENT DATE: 202002
